FAERS Safety Report 6120647-4 (Version None)
Quarter: 2009Q1

REPORT INFORMATION
  Report Type: 
  Country: None (occurrence: None)
  Receive Date: 20090312
  Receipt Date: 20090312
  Transmission Date: 20090719
  Serious: Yes (Other)
  Sender: FDA-Public Use
  Company Number: None

PATIENT
  Sex: Male
  Weight: 17.6903 kg

DRUGS (1)
  1. SINGULAIR [Suspect]
     Indication: CHRONIC SINUSITIS
     Dosage: 1 TABLET
     Dates: start: 20090216, end: 20090310

REACTIONS (5)
  - AGGRESSION [None]
  - ANGER [None]
  - CRYING [None]
  - IRRITABILITY [None]
  - PERSONALITY CHANGE [None]
